FAERS Safety Report 25077891 (Version 1)
Quarter: 2025Q1

REPORT INFORMATION
  Report Type: Spontaneous
  Country: DE (occurrence: DE)
  Receive Date: 20250314
  Receipt Date: 20250314
  Transmission Date: 20250409
  Serious: Yes (Other)
  Sender: BOEHRINGER INGELHEIM
  Company Number: DE-BoehringerIngelheim-2025-BI-014017

PATIENT
  Age: 60 Year
  Sex: Female

DRUGS (8)
  1. EMPAGLIFLOZIN [Suspect]
     Active Substance: EMPAGLIFLOZIN
     Indication: Type 2 diabetes mellitus
  2. METFORMIN HYDROCHLORIDE [Concomitant]
     Active Substance: METFORMIN HYDROCHLORIDE
     Indication: Type 2 diabetes mellitus
  3. Glargin U 300 [Concomitant]
     Indication: Type 2 diabetes mellitus
  4. Ezetimib 10 [Concomitant]
     Indication: Product used for unknown indication
  5. Bempedoins?ure 180 [Concomitant]
     Indication: Product used for unknown indication
  6. MAGNESIUM [Concomitant]
     Active Substance: MAGNESIUM
     Indication: Product used for unknown indication
  7. Tirzepatid [Concomitant]
     Indication: Product used for unknown indication
     Dosage: INITIALLY
  8. Tirzepatid [Concomitant]
     Dosage: FURTHER INCREASE

REACTIONS (9)
  - Myocardial infarction [Unknown]
  - Coronary artery disease [Unknown]
  - Coronary angioplasty [Unknown]
  - Stent placement [Unknown]
  - Vibration syndrome [Unknown]
  - Hypoaesthesia [Unknown]
  - Blood triglycerides increased [Recovering/Resolving]
  - Hypertension [Recovering/Resolving]
  - Blood cholesterol increased [Recovering/Resolving]

NARRATIVE: CASE EVENT DATE: 20210101
